FAERS Safety Report 10962467 (Version 1)
Quarter: 2015Q1

REPORT INFORMATION
  Report Type: Spontaneous
  Country: ES (occurrence: ES)
  Receive Date: 20150327
  Receipt Date: 20150327
  Transmission Date: 20150721
  Serious: Yes (Other)
  Sender: FDA-Public Use
  Company Number: ES-GLAXOSMITHKLINE-ES2015GSK039435

PATIENT
  Age: 60 Year
  Sex: Male

DRUGS (2)
  1. ALBUTEROL. [Suspect]
     Active Substance: ALBUTEROL
     Indication: PRODUCT USED FOR UNKNOWN INDICATION
     Dosage: 200 UG, UNK
     Route: 055
  2. TERBUTALINE [Suspect]
     Active Substance: TERBUTALINE
     Indication: PRODUCT USED FOR UNKNOWN INDICATION
     Dosage: 1 PUFF(S), UNK
     Route: 055

REACTIONS (10)
  - Pruritus generalised [Unknown]
  - Erythema [Unknown]
  - Chest discomfort [Unknown]
  - Hypersensitivity [Unknown]
  - Forced expiratory volume decreased [Recovering/Resolving]
  - Dyspnoea [Unknown]
  - Anaphylactic reaction [Unknown]
  - Bronchospasm [Unknown]
  - Wheezing [Unknown]
  - Cough [Unknown]
